FAERS Safety Report 7579209-4 (Version None)
Quarter: 2011Q2

REPORT INFORMATION
  Report Type: 
  Country: None (occurrence: None)
  Receive Date: 20110628
  Receipt Date: 20110616
  Transmission Date: 20111010
  Serious: Yes (Other)
  Sender: FDA-Public Use
  Company Number: US-ELI_LILLY_AND_COMPANY-US201106006058

PATIENT
  Sex: Female

DRUGS (4)
  1. CYMBALTA [Suspect]
     Dosage: 60 MG, QD
     Dates: start: 20101201
  2. XANAX [Concomitant]
  3. CYMBALTA [Suspect]
     Indication: DEPRESSION
     Dosage: 120 MG, UNK
     Dates: start: 20060101
  4. SYNTHROID [Concomitant]

REACTIONS (19)
  - BRUXISM [None]
  - AGITATION [None]
  - AFFECT LABILITY [None]
  - AGGRESSION [None]
  - DIZZINESS [None]
  - FORMICATION [None]
  - MOOD ALTERED [None]
  - HEADACHE [None]
  - INSOMNIA [None]
  - CRYING [None]
  - DRUG WITHDRAWAL SYNDROME [None]
  - PARAESTHESIA [None]
  - LETHARGY [None]
  - ANXIETY [None]
  - SENSORY DISTURBANCE [None]
  - AMNESIA [None]
  - SUICIDAL IDEATION [None]
  - ABNORMAL BEHAVIOUR [None]
  - IRRITABILITY [None]
